FAERS Safety Report 26055248 (Version 2)
Quarter: 2025Q4

REPORT INFORMATION
  Report Type: Spontaneous
  Country: US (occurrence: US)
  Receive Date: 20251117
  Receipt Date: 20251211
  Transmission Date: 20260118
  Serious: Yes (Hospitalization, Other)
  Sender: ELI LILLY AND COMPANY
  Company Number: US-ELI_LILLY_AND_COMPANY-US202511010093

PATIENT
  Age: 59 Year
  Sex: Male
  Weight: 121.1 kg

DRUGS (16)
  1. MOUNJARO [Suspect]
     Active Substance: TIRZEPATIDE
     Indication: Type 2 diabetes mellitus
     Dosage: 15 MG, WEEKLY (1/W)
     Route: 058
     Dates: start: 20241122, end: 20250904
  2. MOUNJARO [Suspect]
     Active Substance: TIRZEPATIDE
     Indication: Type 2 diabetes mellitus
     Dosage: 15 MG, WEEKLY (1/W)
     Route: 058
     Dates: start: 20241122, end: 20250904
  3. MOUNJARO [Suspect]
     Active Substance: TIRZEPATIDE
     Indication: Type 2 diabetes mellitus
     Dosage: 15 MG, WEEKLY (1/W)
     Route: 058
     Dates: start: 20241122, end: 20250904
  4. MOUNJARO [Suspect]
     Active Substance: TIRZEPATIDE
     Indication: Type 2 diabetes mellitus
     Dosage: 15 MG, WEEKLY (1/W)
     Route: 058
     Dates: start: 20241122, end: 20250904
  5. MAGNESIUM [Concomitant]
     Active Substance: MAGNESIUM
     Indication: Product used for unknown indication
     Dosage: UNK
     Dates: start: 20230503
  6. GVOKE [Concomitant]
     Active Substance: GLUCAGON
     Indication: Hypoglycaemia
     Dosage: UNK
     Dates: start: 20230503
  7. LORATADINE [Concomitant]
     Active Substance: LORATADINE
     Indication: Product used for unknown indication
     Dosage: UNK
     Dates: start: 20230503
  8. NITROGLYCERIN [Concomitant]
     Active Substance: NITROGLYCERIN
     Indication: Chest pain
     Dosage: UNK
     Dates: start: 20240129
  9. ALBUTEROL [Concomitant]
     Active Substance: ALBUTEROL
     Indication: Product used for unknown indication
     Dosage: UNK
     Dates: start: 20241122
  10. FUROSEMIDE [Concomitant]
     Active Substance: FUROSEMIDE
     Indication: Product used for unknown indication
     Dosage: 80 MG
     Dates: start: 20241122
  11. OMEPRAZOLE [Concomitant]
     Active Substance: OMEPRAZOLE
     Indication: Product used for unknown indication
     Dosage: UNK
     Dates: start: 20250110
  12. VITAMIN D3 [Concomitant]
     Active Substance: CHOLECALCIFEROL
     Indication: Product used for unknown indication
     Dosage: 1250 DOSAGE FORM, OTHER (OTHER WEEKLY)
     Dates: start: 20250110
  13. CARVEDILOL [Concomitant]
     Active Substance: CARVEDILOL
     Indication: Product used for unknown indication
     Dosage: UNK
     Route: 048
     Dates: start: 20250423
  14. BUPRENORPHINE HYDROCHLORIDE [Concomitant]
     Active Substance: BUPRENORPHINE HYDROCHLORIDE
     Indication: Pain
  15. FIASP [Concomitant]
     Active Substance: INSULIN ASPART
     Indication: Insulin therapy
     Dosage: UNK
     Dates: start: 20250711
  16. ESOMEPRAZOLE MAGNESIUM [Concomitant]
     Active Substance: ESOMEPRAZOLE MAGNESIUM
     Indication: Product used for unknown indication
     Dosage: UNK
     Dates: start: 20250717

REACTIONS (16)
  - Papillary thyroid cancer [Recovered/Resolved]
  - Fall [Unknown]
  - Presyncope [Unknown]
  - Peripheral swelling [Unknown]
  - Hypotension [Unknown]
  - Heart rate decreased [Unknown]
  - Headache [Unknown]
  - Migraine [Unknown]
  - Chest pain [Unknown]
  - Dizziness [Unknown]
  - Gait disturbance [Unknown]
  - Flank pain [Unknown]
  - Pruritus [Unknown]
  - Fatigue [Unknown]
  - Swollen tongue [Unknown]
  - Pharyngeal swelling [Unknown]

NARRATIVE: CASE EVENT DATE: 20250701
